FAERS Safety Report 8699263 (Version 3)
Quarter: 2013Q4

REPORT INFORMATION
  Report Type: Spontaneous
  Country: NO (occurrence: NO)
  Receive Date: 20120802
  Receipt Date: 20131108
  Transmission Date: 20140711
  Serious: Yes (Other)
  Sender: FDA-Public Use
  Company Number: NO-009507513-2009SP029541

PATIENT
  Age: 56 Year
  Sex: Female

DRUGS (2)
  1. CLARITYN [Suspect]
     Indication: HYPERSENSITIVITY
     Dosage: 0.5 DF, ONCE
     Route: 048
     Dates: start: 20090408, end: 20090408
  2. LORATADINE [Suspect]
     Indication: PRODUCT USED FOR UNKNOWN INDICATION
     Route: 048

REACTIONS (9)
  - Hypoaesthesia [Recovered/Resolved with Sequelae]
  - Speech disorder [Recovering/Resolving]
  - Paraesthesia [Unknown]
  - Dizziness [Unknown]
  - Peripheral coldness [Unknown]
  - Malaise [Unknown]
  - Head discomfort [Unknown]
  - Headache [Unknown]
  - Asthma [Recovering/Resolving]
